FAERS Safety Report 9322041 (Version 1)
Quarter: 2013Q2

REPORT INFORMATION
  Report Type: Spontaneous
  Country: US (occurrence: None)
  Receive Date: 20130529
  Receipt Date: 20130529
  Transmission Date: 20140414
  Serious: Yes (Other)
  Sender: FDA-Public Use
  Company Number: 001540863A

PATIENT
  Age: 15 Year
  Sex: Female

DRUGS (2)
  1. X-OUT WASH-IN TREATMENT [Suspect]
     Indication: ACNE
     Dosage: QD
     Route: 061
     Dates: start: 20130311, end: 20130407
  2. X-OUT WASH-IN TREATMENT [Suspect]
     Indication: ACNE
     Dosage: QD
     Route: 061
     Dates: start: 20130311, end: 20130407

REACTIONS (3)
  - Swollen tongue [None]
  - Throat tightness [None]
  - Urticaria [None]
